FAERS Safety Report 4427832-8 (Version None)
Quarter: 2004Q3

REPORT INFORMATION
  Report Type: 
  Country: None (occurrence: None)
  Receive Date: 20040812
  Receipt Date: 20040805
  Transmission Date: 20050211
  Serious: Yes (Hospitalization)
  Sender: FDA-Public Use
  Company Number: 2004-07-1667

PATIENT
  Sex: Female

DRUGS (4)
  1. AERIUS (DESLORATADINE) TABLETS   'LIKE CLARINEX' [Suspect]
     Indication: PRURITUS
     Dosage: SEE IMAGE
     Route: 048
  2. ZYRTEC [Concomitant]
  3. KAELORID [Concomitant]
  4. CIPRAMIL [Concomitant]

REACTIONS (7)
  - BLISTER [None]
  - BLOOD BLISTER [None]
  - HIP FRACTURE [None]
  - PAIN [None]
  - SCRATCH [None]
  - SKIN INFECTION [None]
  - WOUND [None]
